FAERS Safety Report 15101753 (Version 2)
Quarter: 2018Q3

REPORT INFORMATION
  Report Type: Spontaneous
  Country: JP (occurrence: JP)
  Receive Date: 20180703
  Receipt Date: 20180706
  Transmission Date: 20181010
  Serious: Yes (Other)
  Sender: FDA-Public Use
  Company Number: JP-SA-2018SA170638

PATIENT
  Age: 62 Year
  Sex: Male

DRUGS (3)
  1. ENZALUTAMIDE [Suspect]
     Active Substance: ENZALUTAMIDE
     Indication: PRODUCT USED FOR UNKNOWN INDICATION
     Dosage: UNK
     Route: 065
     Dates: start: 201408
  2. TAXOTERE [Suspect]
     Active Substance: DOCETAXEL
     Dosage: 100 MG
     Route: 042
     Dates: start: 201306, end: 201408
  3. TAXOTERE [Suspect]
     Active Substance: DOCETAXEL
     Indication: PRODUCT USED FOR UNKNOWN INDICATION
     Dosage: 120 MG
     Route: 042
     Dates: start: 201306, end: 201306

REACTIONS (3)
  - Hydronephrosis [Unknown]
  - Neutrophil count decreased [Unknown]
  - Metastases to spine [Unknown]

NARRATIVE: CASE EVENT DATE: 201306
